FAERS Safety Report 23052224 (Version 1)
Quarter: 2023Q4

REPORT INFORMATION
  Report Type: Spontaneous
  Country: GB (occurrence: GB)
  Receive Date: 20231010
  Receipt Date: 20231010
  Transmission Date: 20240109
  Serious: Yes (Other)
  Sender: FDA-Public Use
  Company Number: GB-BIOGEN-2023BI01230210

PATIENT
  Sex: Female

DRUGS (3)
  1. TYSABRI [Suspect]
     Active Substance: NATALIZUMAB
     Indication: Product used for unknown indication
     Route: 050
  2. DESOGESTREL [Concomitant]
     Active Substance: DESOGESTREL
     Indication: Contraception
     Dosage: ORAL CONTRACEPTIVE PILLS
     Route: 050
  3. ETHINYL ESTRADIOL [Concomitant]
     Active Substance: ETHINYL ESTRADIOL
     Indication: Contraception
     Dosage: ORAL CONTRACEPTIVE PILLS
     Route: 050
     Dates: start: 2021

REACTIONS (1)
  - Deep vein thrombosis [Not Recovered/Not Resolved]

NARRATIVE: CASE EVENT DATE: 20230929
